FAERS Safety Report 6326978-7 (Version None)
Quarter: 2009Q3

REPORT INFORMATION
  Report Type: 
  Country: None (occurrence: None)
  Receive Date: 20090825
  Receipt Date: 20090819
  Transmission Date: 20100115
  Serious: Yes (Hospitalization)
  Sender: FDA-Public Use
  Company Number: US-TEVA-206619USA

PATIENT
  Sex: Female

DRUGS (1)
  1. AMPHETAMINES [Suspect]
     Route: 048

REACTIONS (2)
  - DYSARTHRIA [None]
  - NERVOUS SYSTEM DISORDER [None]
